FAERS Safety Report 8999391 (Version 3)
Quarter: 2013Q1

REPORT INFORMATION
  Report Type: Spontaneous
  Country: TR (occurrence: TR)
  Receive Date: 20130103
  Receipt Date: 20130314
  Transmission Date: 20140127
  Serious: Yes (Other)
  Sender: FDA-Public Use
  Company Number: TR-PFIZER INC-2012329922

PATIENT
  Age: 48 Year
  Sex: Male

DRUGS (4)
  1. FLUOROURACIL [Suspect]
     Indication: METASTATIC GASTRIC CANCER
     Dosage: 400 MG/M2, UNK
     Route: 040
  2. FLUOROURACIL [Suspect]
     Dosage: 2400 MG/M2, 46-H INFUSION
     Route: 042
  3. IRINOTECAN [Concomitant]
     Indication: METASTATIC GASTRIC CANCER
     Dosage: 180 MG/M2, UNK
  4. FOLINIC ACID [Concomitant]
     Indication: METASTATIC GASTRIC CANCER
     Dosage: 400 MG/M2, UNK

REACTIONS (1)
  - Stress cardiomyopathy [Unknown]
